FAERS Safety Report 6280276-9 (Version None)
Quarter: 2009Q3

REPORT INFORMATION
  Report Type: 
  Country: None (occurrence: None)
  Receive Date: 20090723
  Receipt Date: 20090717
  Transmission Date: 20100115
  Serious: No
  Sender: FDA-Public Use
  Company Number: US-ASTRAZENECA-2009SE05280

PATIENT
  Age: 71 Year
  Sex: Female

DRUGS (6)
  1. SYMBICORT [Suspect]
     Dosage: 160/4.5
     Route: 055
     Dates: start: 20090709, end: 20090714
  2. ALBUTEROL [Concomitant]
  3. DUONEB [Concomitant]
  4. OXYGEN [Concomitant]
  5. SIMVASTATIN [Concomitant]
  6. ASPIRIN [Concomitant]

REACTIONS (2)
  - DYSPHONIA [None]
  - DYSPNOEA [None]
